FAERS Safety Report 10566091 (Version 2)
Quarter: 2014Q4

REPORT INFORMATION
  Report Type: Spontaneous
  Country: CA (occurrence: CA)
  Receive Date: 20141105
  Receipt Date: 20141118
  Transmission Date: 20150529
  Serious: Yes (Death, Life-Threatening, Hospitalization)
  Sender: FDA-Public Use
  Company Number: CA-PFIZER INC-2014304977

PATIENT
  Age: 57 Year
  Sex: Male
  Weight: 120 kg

DRUGS (2)
  1. INLYTA [Suspect]
     Active Substance: AXITINIB
     Indication: RENAL CELL CARCINOMA
     Dosage: 5 MG, CYCLIC (5 MG 2X/DAY) (CYCLES 1-8)
     Dates: start: 20130305
  2. INLYTA [Suspect]
     Active Substance: AXITINIB
     Dosage: 7 MG, CYCLIC (7 MG 2X/DAY) (CYCLES 9-22)

REACTIONS (2)
  - Metastatic renal cell carcinoma [Fatal]
  - Disease progression [Fatal]
